FAERS Safety Report 4368833-8 (Version None)
Quarter: 2004Q2

REPORT INFORMATION
  Report Type: 
  Country: None (occurrence: None)
  Receive Date: 20040601
  Receipt Date: 20040601
  Transmission Date: 20050107
  Serious: Yes (Hospitalization)
  Sender: FDA-Public Use
  Company Number: None

PATIENT
  Sex: Male
  Weight: 8 kg

DRUGS (1)
  1. LIDOCAINE AND PRILOCAINE [Suspect]
     Dosage: 1 APP OTOTOP
     Dates: start: 20040112

REACTIONS (1)
  - LABORATORY TEST ABNORMAL [None]
